FAERS Safety Report 16903366 (Version 5)
Quarter: 2020Q4

REPORT INFORMATION
  Report Type: Spontaneous
  Country: US (occurrence: US)
  Receive Date: 20191010
  Receipt Date: 20201204
  Transmission Date: 20210113
  Serious: No
  Sender: FDA-Public Use
  Company Number: US-PFIZER INC-2019432609

PATIENT
  Age: 68 Year
  Sex: Female

DRUGS (3)
  1. BOSULIF [Suspect]
     Active Substance: BOSUTINIB MONOHYDRATE
     Indication: CHRONIC MYELOID LEUKAEMIA
     Dosage: 500 MG, UNK
  2. BOSULIF [Suspect]
     Active Substance: BOSUTINIB MONOHYDRATE
     Dosage: 100 MG, CYCLIC (FOR 21 CONSECUTIVE DAYS, THEN 7 DAYS OFF TO COMPRISE A COMPLETE CYCLE OF 28 DAYS)
  3. BOSULIF [Suspect]
     Active Substance: BOSUTINIB MONOHYDRATE
     Dosage: 500 MG, DAILY
     Route: 048
     Dates: start: 201911

REACTIONS (3)
  - Diarrhoea [Unknown]
  - Cytogenetic analysis abnormal [Unknown]
  - Illness [Unknown]

NARRATIVE: CASE EVENT DATE: 201703
